FAERS Safety Report 8904259 (Version 1)
Quarter: 2012Q4

REPORT INFORMATION
  Report Type: 
  Country: US (occurrence: US)
  Receive Date: 20121112
  Receipt Date: 20121112
  Transmission Date: 20130627
  Serious: Yes (Other)
  Sender: FDA-Public Use
  Company Number: US-BAYER-2012-117594

PATIENT
  Age: 70 Year
  Sex: Female
  Weight: 60.32 kg

DRUGS (14)
  1. ALEVE CAPLET/TABLET,MIDOL EXTENDED RELIEF CAPLET [Suspect]
     Indication: PAIN NOS
     Dosage: 1 DF, ONCE
     Route: 048
     Dates: start: 20121106, end: 20121106
  2. WARFARIN [Concomitant]
  3. ACTOS [Concomitant]
  4. DIGOXIN [Concomitant]
  5. LISINOPRIL [Concomitant]
  6. ALLOPURINOL [Concomitant]
  7. NITROQUICK [Concomitant]
  8. TRAVATAN [Concomitant]
  9. MULTIVITAMIN [Concomitant]
  10. OMEGA 3 FISH OIL [Concomitant]
  11. POTASSIUM [POTASSIUM] [Concomitant]
  12. CALCIUM [CALCIUM] [Concomitant]
  13. MAGNESIUM [Concomitant]
  14. HYDROCHLOROTHIAZIDE [Concomitant]

REACTIONS (4)
  - Lip swelling [Recovered/Resolved]
  - Swollen tongue [Recovered/Resolved]
  - Diarrhoea [Recovered/Resolved]
  - Paraesthesia oral [Recovered/Resolved]
